FAERS Safety Report 7883611-0 (Version None)
Quarter: 2011Q4

REPORT INFORMATION
  Report Type: 
  Country: None (occurrence: None)
  Receive Date: 20111102
  Receipt Date: 20110923
  Transmission Date: 20120403
  Serious: Yes (Hospitalization)
  Sender: FDA-Public Use
  Company Number: ZA-BRISTOL-MYERS SQUIBB COMPANY-16185175

PATIENT
  Age: 10 Year
  Sex: Female

DRUGS (1)
  1. EFAVIRENZ [Suspect]
     Route: 065

REACTIONS (9)
  - ACCIDENTAL OVERDOSE [None]
  - MUSCLE TWITCHING [None]
  - VOMITING [None]
  - PHOTOPHOBIA [None]
  - GASTRIC DISORDER [None]
  - DEPRESSED LEVEL OF CONSCIOUSNESS [None]
  - RASH [None]
  - DERMATITIS [None]
  - HYPERTONIA [None]
